FAERS Safety Report 4582337-9 (Version None)
Quarter: 2005Q1

REPORT INFORMATION
  Report Type: 
  Country: None (occurrence: None)
  Receive Date: 20050215
  Receipt Date: 20050201
  Transmission Date: 20050727
  Serious: Yes (Other)
  Sender: FDA-Public Use
  Company Number: US-JNJFOC-20041000163

PATIENT
  Sex: Female
  Weight: 65.77 kg

DRUGS (20)
  1. REMICADE [Suspect]
     Indication: RHEUMATOID ARTHRITIS
     Route: 042
  2. METHOTREXATE [Concomitant]
     Indication: RHEUMATOID ARTHRITIS
  3. ARAVA [Concomitant]
     Indication: RHEUMATOID ARTHRITIS
  4. FOSAMAX [Concomitant]
  5. PROTONIX [Concomitant]
  6. PREDNISONE [Concomitant]
  7. FLONASE [Concomitant]
     Indication: ASTHMA
  8. ADVAIR DISKUS 100/50 [Concomitant]
  9. ADVAIR DISKUS 100/50 [Concomitant]
     Indication: ASTHMA
  10. PRAVACHOL [Concomitant]
  11. ATENOLOL [Concomitant]
  12. MULTI-VITAMINS [Concomitant]
  13. MULTI-VITAMINS [Concomitant]
  14. MULTI-VITAMINS [Concomitant]
  15. MULTI-VITAMINS [Concomitant]
  16. MULTI-VITAMINS [Concomitant]
  17. MULTI-VITAMINS [Concomitant]
  18. MULTI-VITAMINS [Concomitant]
  19. MULTI-VITAMINS [Concomitant]
  20. ASPIRIN [Concomitant]

REACTIONS (11)
  - CHEST DISCOMFORT [None]
  - CHEST PAIN [None]
  - DRUG HYPERSENSITIVITY [None]
  - DYSPNOEA [None]
  - FLUID RETENTION [None]
  - HYPERSENSITIVITY [None]
  - HYPOXIA [None]
  - LOWER RESPIRATORY TRACT INFLAMMATION [None]
  - LUNG INJURY [None]
  - VERTIGO [None]
  - VISION BLURRED [None]
